FAERS Safety Report 5878567-6 (Version None)
Quarter: 2008Q3

REPORT INFORMATION
  Report Type: 
  Country: None (occurrence: None)
  Receive Date: 20080911
  Receipt Date: 20080829
  Transmission Date: 20090109
  Serious: Yes (Other)
  Sender: FDA-Public Use
  Company Number: IT-GENENTECH-267482

PATIENT
  Sex: Female

DRUGS (1)
  1. MABTHERA [Suspect]
     Indication: ARTHRITIS
     Dosage: 1 G, UNK
     Route: 042
     Dates: start: 20080723, end: 20080723

REACTIONS (3)
  - ARTHRITIS [None]
  - RASH [None]
  - SERUM SICKNESS [None]
